FAERS Safety Report 7480656-X (Version None)
Quarter: 2011Q2

REPORT INFORMATION
  Report Type: 
  Country: None (occurrence: None)
  Receive Date: 20110516
  Receipt Date: 20110505
  Transmission Date: 20111010
  Serious: Yes (Death, Other)
  Sender: FDA-Public Use
  Company Number: US-JNJFOC-20110504057

PATIENT
  Age: 33 Year
  Sex: Female

DRUGS (1)
  1. TOPIRAMATE [Suspect]
     Indication: POST-TRAUMATIC EPILEPSY
     Route: 048

REACTIONS (6)
  - SHOCK [None]
  - RENAL TUBULAR ACIDOSIS [None]
  - BAND NEUTROPHIL COUNT INCREASED [None]
  - LEUKOCYTOSIS [None]
  - METABOLIC ACIDOSIS [None]
  - RHABDOMYOLYSIS [None]
